FAERS Safety Report 11733397 (Version 2)
Quarter: 2016Q1

REPORT INFORMATION
  Report Type: Spontaneous
  Country: JP (occurrence: JP)
  Receive Date: 20151113
  Receipt Date: 20160129
  Transmission Date: 20160525
  Serious: Yes (Hospitalization)
  Sender: FDA-Public Use
  Company Number: JP-JNJFOC-20151109052

PATIENT
  Age: 64 Year
  Sex: Female

DRUGS (3)
  1. REMICADE [Suspect]
     Active Substance: INFLIXIMAB
     Indication: RHEUMATOID ARTHRITIS
     Route: 042
     Dates: start: 201411
  2. REMICADE [Suspect]
     Active Substance: INFLIXIMAB
     Indication: RHEUMATOID ARTHRITIS
     Dosage: SECOND DOSE
     Route: 042
  3. REMICADE [Suspect]
     Active Substance: INFLIXIMAB
     Indication: RHEUMATOID ARTHRITIS
     Dosage: 3RD DOSE
     Route: 042

REACTIONS (6)
  - Paradoxical drug reaction [Recovering/Resolving]
  - Rash [Recovering/Resolving]
  - Acute generalised exanthematous pustulosis [Recovering/Resolving]
  - Tonsillitis [Recovering/Resolving]
  - Pustular psoriasis [Recovering/Resolving]
  - Pneumonia [Recovering/Resolving]
